FAERS Safety Report 25862088 (Version 1)
Quarter: 2025Q3

REPORT INFORMATION
  Report Type: Report from Study
  Country: KR (occurrence: KR)
  Receive Date: 20250930
  Receipt Date: 20250930
  Transmission Date: 20251021
  Serious: Yes (Death, Hospitalization)
  Sender: BAXTER
  Company Number: KR-BAXTER-2025BAX021649

PATIENT
  Age: 74 Year
  Sex: Male
  Weight: 53.7 kg

DRUGS (36)
  1. CYCLOPHOSPHAMIDE [Suspect]
     Active Substance: CYCLOPHOSPHAMIDE
     Indication: Diffuse large B-cell lymphoma
     Dosage: 1050 MG, EVERY 3 WK
     Route: 042
     Dates: start: 20240321, end: 20240524
  2. DOXORUBICIN [Suspect]
     Active Substance: DOXORUBICIN
     Indication: Diffuse large B-cell lymphoma
     Dosage: 70 MG, EVERY 3 WK
     Route: 042
     Dates: start: 20240321, end: 20240524
  3. EPCORITAMAB [Suspect]
     Active Substance: EPCORITAMAB
     Indication: Diffuse large B-cell lymphoma
     Route: 065
  4. DEXAMETHASONE [Suspect]
     Active Substance: DEXAMETHASONE
     Indication: Diffuse large B-cell lymphoma
     Route: 048
     Dates: start: 20240412, end: 20240527
  5. DEXAMETHASONE [Suspect]
     Active Substance: DEXAMETHASONE
     Dosage: 15 MG C2-4, DAY 1, EVERY 3 WEEKS
     Route: 042
     Dates: start: 20240411, end: 20240524
  6. VINCRISTINE [Suspect]
     Active Substance: VINCRISTINE
     Indication: Diffuse large B-cell lymphoma
     Dosage: 2 MG, EVERY 3 WK
     Route: 042
     Dates: start: 20240321, end: 20240524
  7. RITUXIMAB [Suspect]
     Active Substance: RITUXIMAB
     Indication: Diffuse large B-cell lymphoma
     Dosage: 525 MG, EVERY 3 WK
     Route: 042
     Dates: start: 20240321, end: 20240524
  8. Fentadur [Concomitant]
     Indication: Pain prophylaxis
     Route: 065
     Dates: start: 20240315
  9. MORPHINE SULFATE [Concomitant]
     Active Substance: MORPHINE SULFATE
     Indication: Abdominal pain
     Route: 065
     Dates: start: 20240318, end: 20240530
  10. MORPHINE SULFATE [Concomitant]
     Active Substance: MORPHINE SULFATE
     Indication: Periorbital pain
  11. MORPHINE SULFATE [Concomitant]
     Active Substance: MORPHINE SULFATE
     Indication: Back pain
  12. MORPHINE SULFATE [Concomitant]
     Active Substance: MORPHINE SULFATE
     Indication: Flank pain
  13. FOLIC ACID [Concomitant]
     Active Substance: FOLIC ACID
     Indication: Antifungal prophylaxis
     Route: 065
     Dates: start: 20240321
  14. PLATELETS [Concomitant]
     Active Substance: HUMAN PLATELET, ALLOGENIC
     Indication: Thrombocytopenia
     Route: 065
     Dates: start: 20240515, end: 20240515
  15. Omps [Concomitant]
     Indication: Gastrooesophageal reflux prophylaxis
     Route: 065
     Dates: start: 20240321, end: 20240530
  16. SULFAMETHOXAZOLE\TRIMETHOPRIM [Concomitant]
     Active Substance: SULFAMETHOXAZOLE\TRIMETHOPRIM
     Indication: Antifungal prophylaxis
     Route: 065
     Dates: start: 20240321
  17. Akynzeo [Concomitant]
     Indication: Prophylaxis of nausea and vomiting
     Route: 065
     Dates: start: 20240321, end: 20240524
  18. ATIVAN [Concomitant]
     Active Substance: LORAZEPAM
     Indication: Chemotherapy side effect prophylaxis
     Dosage: 1 MG, EVERY 3 WK
     Route: 065
     Dates: start: 20240321, end: 20240524
  19. Biotop d [Concomitant]
     Indication: Constipation
     Route: 065
     Dates: start: 20240528
  20. Setopen [Concomitant]
     Indication: Antipyresis
     Dosage: 650 MG, EVERY 3 WK, EXTENDED RELEASE
     Route: 065
     Dates: start: 20240321, end: 20240524
  21. Setopen [Concomitant]
     Indication: Pain prophylaxis
  22. Setopen [Concomitant]
     Indication: Chemotherapy side effect prophylaxis
  23. HUMAN RED BLOOD CELL [Concomitant]
     Active Substance: HUMAN RED BLOOD CELL
     Indication: Anaemia
     Route: 065
     Dates: start: 20240515, end: 20240515
  24. PIPERACILLIN SODIUM\TAZOBACTAM SODIUM [Concomitant]
     Active Substance: PIPERACILLIN SODIUM\TAZOBACTAM SODIUM
     Indication: Infection prophylaxis
     Dosage: 4.5 G, TID 3/DAYS
     Route: 065
     Dates: start: 20240523
  25. NYSTATIN [Concomitant]
     Active Substance: NYSTATIN
     Indication: Prophylaxis
     Dosage: 5 ML, TID 3/DAYS
     Route: 065
     Dates: start: 20240401
  26. EDOXABAN TOSYLATE [Concomitant]
     Active Substance: EDOXABAN TOSYLATE
     Indication: Constipation
     Route: 065
     Dates: start: 20240523
  27. HUMULIN R [Concomitant]
     Active Substance: INSULIN HUMAN
     Indication: Hyperglycaemia
     Route: 065
     Dates: start: 20240526
  28. Uni infusion [Concomitant]
     Indication: Hepatobiliary disorder prophylaxis
     Route: 065
     Dates: start: 20240523
  29. DICLOFENAC DEANOL [Concomitant]
     Active Substance: DICLOFENAC DEANOL
     Indication: Abdominal pain
     Route: 065
     Dates: start: 20240319
  30. DICLOFENAC DEANOL [Concomitant]
     Active Substance: DICLOFENAC DEANOL
     Indication: Periorbital pain
  31. DICLOFENAC DEANOL [Concomitant]
     Active Substance: DICLOFENAC DEANOL
     Indication: Back pain
  32. DICLOFENAC DEANOL [Concomitant]
     Active Substance: DICLOFENAC DEANOL
     Indication: Flank pain
  33. Mago [Concomitant]
     Indication: Constipation
     Route: 065
     Dates: start: 20240528
  34. OXYGEN [Concomitant]
     Active Substance: OXYGEN
     Indication: Dyspnoea
     Dates: start: 20240528
  35. Peniramin [Concomitant]
     Indication: Antiallergic therapy
     Route: 065
     Dates: start: 20240420
  36. Peniramin [Concomitant]
     Indication: Premedication

REACTIONS (1)
  - Sepsis [Fatal]

NARRATIVE: CASE EVENT DATE: 20240530
